FAERS Safety Report 11554441 (Version 2)
Quarter: 2015Q3

REPORT INFORMATION
  Report Type: Spontaneous
  Country: BR (occurrence: BR)
  Receive Date: 20150925
  Receipt Date: 20150925
  Transmission Date: 20151125
  Serious: Yes (Other)
  Sender: FDA-Public Use
  Company Number: PHHY2015BR115107

PATIENT
  Sex: Female
  Weight: 60 kg

DRUGS (5)
  1. TRAVATAN [Suspect]
     Active Substance: TRAVOPROST
     Indication: INTRAOCULAR PRESSURE INCREASED
     Dosage: 1 DF (ONE DROP IN EACH AYE), QHS (AT NIGHT)
     Route: 065
  2. ROSUVASTATIN [Concomitant]
     Active Substance: ROSUVASTATIN
     Indication: BLOOD CHOLESTEROL INCREASED
     Dosage: 1 DF, QD
     Route: 065
  3. PURAN [Concomitant]
     Active Substance: LEVOTHYROXINE SODIUM
     Indication: HYPOTHYROIDISM
     Dosage: 1 DF, QD (IN THE MORNING)
     Route: 065
  4. DIOVAN [Suspect]
     Active Substance: VALSARTAN
     Indication: HYPERTENSION
     Route: 065
  5. REFRESH OPTIVE [Concomitant]
     Active Substance: CARBOXYMETHYLCELLULOSE SODIUM\GLYCERIN
     Indication: EYE LUBRICATION THERAPY
     Dosage: 1 DF (ONE DROP IN EACH EYE), Q3H
     Route: 065

REACTIONS (3)
  - Cataract [Not Recovered/Not Resolved]
  - Hypertension [Not Recovered/Not Resolved]
  - Pterygium [Not Recovered/Not Resolved]
